FAERS Safety Report 19998735 (Version 1)
Quarter: 2021Q4

REPORT INFORMATION
  Report Type: Spontaneous
  Country: US (occurrence: US)
  Receive Date: 20211026
  Receipt Date: 20211026
  Transmission Date: 20220303
  Serious: No
  Sender: FDA-Public Use
  Company Number: US-PFIZER INC-202100972837

PATIENT
  Age: 55 Year
  Sex: Female
  Weight: 88.44 kg

DRUGS (4)
  1. IBRANCE [Suspect]
     Active Substance: PALBOCICLIB
     Indication: Breast cancer female
     Dosage: 125 MG, CYCLIC (21 DAYS AND THEN 7 DAYS OFF)
     Route: 048
     Dates: start: 20210621
  2. CALCIUM CARBONATE [Concomitant]
     Active Substance: CALCIUM CARBONATE
  3. CRANBERRY [Concomitant]
     Active Substance: CRANBERRY
  4. VITAMIN D3 [Concomitant]
     Active Substance: CHOLECALCIFEROL

REACTIONS (2)
  - White blood cell count decreased [Unknown]
  - Bronchitis [Unknown]

NARRATIVE: CASE EVENT DATE: 20210101
